FAERS Safety Report 8614504 (Version 2)
Quarter: 2013Q3

REPORT INFORMATION
  Report Type: Spontaneous
  Country: US (occurrence: US)
  Receive Date: 20120614
  Receipt Date: 20130725
  Transmission Date: 20140515
  Serious: Yes (Disabling, Other)
  Sender: FDA-Public Use
  Company Number: US-ASTRAZENECA-2012SE35730

PATIENT
  Age: 17810 Day
  Sex: Female

DRUGS (25)
  1. NEXIUM [Suspect]
     Route: 048
  2. NEXIUM [Suspect]
     Route: 048
     Dates: start: 20010712
  3. DICYCLOMINE [Concomitant]
     Dates: start: 2012
  4. PANTOPRAZOLE SODIUM [Concomitant]
     Dates: start: 2011
  5. ISOSORBIDE [Concomitant]
  6. TUMS [Concomitant]
     Indication: ANTACID THERAPY
     Dates: start: 2006
  7. PREVACID [Concomitant]
     Indication: ANTACID THERAPY
     Route: 048
     Dates: start: 2009
  8. PREVACID [Concomitant]
     Indication: ANTACID THERAPY
     Route: 048
     Dates: start: 20090325
  9. PREVACID [Concomitant]
     Indication: ANTACID THERAPY
     Route: 048
     Dates: start: 20001030
  10. PREVACID [Concomitant]
     Indication: ANTACID THERAPY
     Route: 048
     Dates: start: 20001017
  11. RECLAST [Concomitant]
     Indication: ANTACID THERAPY
  12. SUCRALFATE [Concomitant]
     Dates: start: 20010228
  13. CYCLOBENZAPRINE [Concomitant]
     Dates: start: 20010128
  14. TRAMADOL [Concomitant]
  15. METHYLPREDNISOLONE [Concomitant]
     Dates: start: 20070918
  16. FLUTICASONE [Concomitant]
     Dates: start: 20090617
  17. ALENDRONATE [Concomitant]
     Dates: start: 20090617
  18. PREDNISONE [Concomitant]
     Dates: start: 20050119
  19. PROTONIX [Concomitant]
     Dates: start: 20060627
  20. LIPITOR [Concomitant]
     Dates: start: 20050114
  21. ACIPHEX [Concomitant]
     Dates: start: 20030501
  22. RANITIDINE [Concomitant]
     Dates: start: 20010228
  23. ESTROPIPATE [Concomitant]
     Dates: start: 19971030
  24. ESTRATEST [Concomitant]
     Dates: start: 19960920
  25. ESTRATAB [Concomitant]
     Dates: start: 19990128

REACTIONS (14)
  - Ankle fracture [Unknown]
  - Intervertebral disc degeneration [Unknown]
  - Intervertebral disc protrusion [Unknown]
  - Joint injury [Unknown]
  - Limb injury [Unknown]
  - Osteoporosis [Unknown]
  - Arthritis [Unknown]
  - Calcium deficiency [Unknown]
  - Crohn^s disease [Unknown]
  - Osteomalacia [Unknown]
  - Vitamin D deficiency [Unknown]
  - Osteoarthritis [Unknown]
  - Rheumatoid arthritis [Unknown]
  - Carpal tunnel syndrome [Unknown]
